FAERS Safety Report 12359103 (Version 2)
Quarter: 2016Q2

REPORT INFORMATION
  Report Type: Spontaneous
  Country: US (occurrence: US)
  Receive Date: 20160512
  Receipt Date: 20160520
  Transmission Date: 20160815
  Serious: Yes (Other)
  Sender: FDA-Public Use
  Company Number: US-BEH-2015057342

PATIENT
  Sex: Female
  Weight: 56 kg

DRUGS (17)
  1. PRIVIGEN [Suspect]
     Active Substance: HUMAN IMMUNOGLOBULIN G
     Indication: SCOLIOSIS
     Route: 042
  2. SINGULAIR [Concomitant]
     Active Substance: MONTELUKAST SODIUM
  3. MIRAPEX [Concomitant]
     Active Substance: PRAMIPEXOLE DIHYDROCHLORIDE
  4. VITAMIN B12 [Concomitant]
     Active Substance: CYANOCOBALAMIN
  5. VITAMIN D3 [Concomitant]
     Active Substance: CHOLECALCIFEROL
  6. PRIVIGEN [Suspect]
     Active Substance: HUMAN IMMUNOGLOBULIN G
     Dosage: START DATE: ??-JUN-2009
     Route: 042
  7. EFFERVESCENT POTASSIUM [Concomitant]
  8. CIPRODEX OTIC SUSPENSION [Concomitant]
  9. POTASSIUM CL ER [Concomitant]
     Active Substance: POTASSIUM CHLORIDE
     Dosage: 10 MEQ
  10. COREG CR [Concomitant]
     Active Substance: CARVEDILOL PHOSPHATE
  11. PRIVIGEN [Suspect]
     Active Substance: HUMAN IMMUNOGLOBULIN G
     Indication: HYPOGAMMAGLOBULINAEMIA
     Route: 042
  12. PRIVIGEN [Suspect]
     Active Substance: HUMAN IMMUNOGLOBULIN G
     Route: 042
  13. PRIVIGEN [Suspect]
     Active Substance: HUMAN IMMUNOGLOBULIN G
     Route: 042
  14. CEFTRIAXONE. [Concomitant]
     Active Substance: CEFTRIAXONE
     Dosage: VIAL
  15. AMOXICILLIN. [Concomitant]
     Active Substance: AMOXICILLIN
  16. CLINDAMYCIN HCL [Concomitant]
     Active Substance: CLINDAMYCIN HYDROCHLORIDE
  17. FOLIC ACID. [Concomitant]
     Active Substance: FOLIC ACID

REACTIONS (3)
  - Pleurisy [Recovering/Resolving]
  - Pleural infection [Recovering/Resolving]
  - Bronchitis [Recovering/Resolving]
